FAERS Safety Report 4295472-X (Version None)
Quarter: 2004Q1

REPORT INFORMATION
  Report Type: 
  Country: None (occurrence: None)
  Receive Date: 20040212
  Receipt Date: 20040202
  Transmission Date: 20041129
  Serious: Yes (Life-Threatening)
  Sender: FDA-Public Use
  Company Number: RGD 54756/408.2/C-518-F-B

PATIENT
  Age: 22 Year
  Sex: Female

DRUGS (2)
  1. LEVONELLE-2 [Suspect]
     Dosage: 2 DOSES ORALLY
     Route: 048
     Dates: start: 20031201
  2. NOVA T 380 (SILVER-COPPER) IUD 11 DEC 2003 [Concomitant]

REACTIONS (2)
  - ECTOPIC PREGNANCY [None]
  - PREGNANCY ON ORAL CONTRACEPTIVE [None]
